FAERS Safety Report 16843057 (Version 1)
Quarter: 2019Q3

REPORT INFORMATION
  Report Type: Spontaneous
  Country: US (occurrence: US)
  Receive Date: 20190924
  Receipt Date: 20190924
  Transmission Date: 20191005
  Serious: No
  Sender: FDA-Public Use
  Company Number: US-ALLERGAN-1926061US

PATIENT
  Sex: Female
  Weight: 70.52 kg

DRUGS (2)
  1. VENLAFAXINE [Suspect]
     Active Substance: VENLAFAXINE HYDROCHLORIDE
     Indication: PRODUCT USED FOR UNKNOWN INDICATION
     Dosage: 150 MG
     Route: 065
  2. LEXAPRO [Suspect]
     Active Substance: ESCITALOPRAM OXALATE
     Indication: MAJOR DEPRESSION
     Dosage: 20 MG
     Route: 065

REACTIONS (17)
  - Psychomotor retardation [Unknown]
  - Anxiety [Unknown]
  - Memory impairment [Unknown]
  - Asthenia [Unknown]
  - Decreased appetite [Unknown]
  - Hypersomnia [Unknown]
  - Suicidal ideation [Unknown]
  - Palpitations [Unknown]
  - Arthralgia [Unknown]
  - Post-traumatic stress disorder [Unknown]
  - Slow speech [Unknown]
  - Decreased interest [Unknown]
  - Headache [Unknown]
  - Feeling guilty [Unknown]
  - Disturbance in attention [Unknown]
  - Panic attack [Unknown]
  - Major depression [Unknown]
